FAERS Safety Report 7585309-5 (Version None)
Quarter: 2011Q2

REPORT INFORMATION
  Report Type: 
  Country: None (occurrence: None)
  Receive Date: 20110628
  Receipt Date: 20110628
  Transmission Date: 20111010
  Serious: Yes (Hospitalization)
  Sender: FDA-Public Use
  Company Number: None

PATIENT
  Sex: Male
  Weight: 86 kg

DRUGS (6)
  1. IBUPROFEN [Concomitant]
  2. STRATTERA [Concomitant]
  3. VALIUM [Concomitant]
  4. LITHIUM CARBONATE [Suspect]
     Indication: BIPOLAR DISORDER
     Dosage: 600MG BID PO CHRONIC
     Route: 048
  5. ORACEA [Concomitant]
  6. LISINOPRIL [Concomitant]

REACTIONS (1)
  - TOXICITY TO VARIOUS AGENTS [None]
